FAERS Safety Report 8268039-6 (Version None)
Quarter: 2012Q2

REPORT INFORMATION
  Report Type: 
  Country: None (occurrence: None)
  Receive Date: 20120409
  Receipt Date: 20120405
  Transmission Date: 20120825
  Serious: Yes (Hospitalization)
  Sender: FDA-Public Use
  Company Number: JP-ABBOTT-11P-087-0856742-00

PATIENT
  Sex: Female
  Weight: 59.3 kg

DRUGS (23)
  1. TOCOPHERYL NICOTINATE [Concomitant]
     Indication: SCIATICA
     Route: 048
     Dates: start: 20040816
  2. TOCOPHERYL NICOTINATE [Concomitant]
     Dosage: DOSE FOR 30 DAYS
     Dates: start: 20110310
  3. AMLODIPINE BESYLATE [Concomitant]
     Indication: PRODUCT USED FOR UNKNOWN INDICATION
     Route: 048
  4. METHOTREXATE [Suspect]
     Indication: RHEUMATOID ARTHRITIS
     Dosage: DOSE FOR 30 DAYS
     Dates: start: 20110310
  5. METHOTREXATE [Suspect]
     Route: 048
     Dates: start: 20040816, end: 20110310
  6. METHOTREXATE [Suspect]
     Dosage: 1 OR 2 TABS PER WEEK, 2-4 MG
     Dates: start: 19980101
  7. INDOMETACIN FARNESIL [Concomitant]
     Dosage: DOSE FOR 30 DAYS
     Dates: start: 20110310
  8. FAMOTIDINE [Concomitant]
     Indication: GASTRITIS PROPHYLAXIS
     Route: 048
     Dates: start: 20040816
  9. REBAMIPIDE [Concomitant]
     Dosage: DOSE FOR 30 DAYS
     Dates: start: 20110310
  10. LOXOPROFEN [Concomitant]
     Indication: PRODUCT USED FOR UNKNOWN INDICATION
  11. HUMIRA [Suspect]
     Indication: RHEUMATOID ARTHRITIS
     Dates: start: 20090827, end: 20110310
  12. BROTIZOLAM [Concomitant]
     Indication: PRODUCT USED FOR UNKNOWN INDICATION
     Route: 048
  13. ALFACALCIDOL [Concomitant]
     Dosage: DOSE FOR 30 DAYS
     Dates: start: 20110310
  14. METHOTREXATE [Suspect]
     Dates: start: 19910101
  15. MECOBALAMIN [Concomitant]
     Dosage: DOSE FOR 30 DAYS
     Dates: start: 20110310
  16. NSAID'S [Concomitant]
     Indication: RHEUMATOID ARTHRITIS
     Dates: start: 19910101
  17. INDOMETACIN FARNESIL [Concomitant]
     Indication: RHEUMATOID ARTHRITIS
     Route: 048
     Dates: start: 20080324
  18. FAMOTIDINE [Concomitant]
     Dosage: DOSE FOR 30 DAYS
     Dates: start: 20110310
  19. REBAMIPIDE [Concomitant]
     Indication: GASTRITIS PROPHYLAXIS
     Route: 048
     Dates: start: 20040816
  20. DICLOFENAC SODIUM [Concomitant]
     Indication: PRODUCT USED FOR UNKNOWN INDICATION
  21. CANDESARTAN CILEXETIL [Concomitant]
     Indication: PRODUCT USED FOR UNKNOWN INDICATION
     Route: 048
  22. MECOBALAMIN [Concomitant]
     Indication: SCIATICA
     Route: 048
     Dates: start: 20080816
  23. ALFACALCIDOL [Concomitant]
     Indication: OSTEOPOROSIS
     Route: 048
     Dates: start: 20040816

REACTIONS (3)
  - TUBERCULOUS PLEURISY [None]
  - PNEUMONIA [None]
  - PERITONEAL TUBERCULOSIS [None]
